FAERS Safety Report 14189368 (Version 1)
Quarter: 2017Q4

REPORT INFORMATION
  Report Type: Report from Study
  Country: US (occurrence: US)
  Receive Date: 20171115
  Receipt Date: 20171115
  Transmission Date: 20180321
  Serious: Yes (Hospitalization)
  Sender: FDA-Public Use
  Company Number: US-ROCHE-2018965

PATIENT
  Age: 74 Year
  Sex: Female
  Weight: 45 kg

DRUGS (10)
  1. PRAVACOL [Concomitant]
     Active Substance: PRAVASTATIN SODIUM
     Route: 048
  2. OBINUTUZUMAB. [Suspect]
     Active Substance: OBINUTUZUMAB
     Indication: B-CELL LYMPHOMA
     Route: 042
     Dates: start: 20170404, end: 20171004
  3. LASIX [Concomitant]
     Active Substance: FUROSEMIDE
     Route: 048
  4. LENALIDOMIDE [Suspect]
     Active Substance: LENALIDOMIDE
     Indication: B-CELL LYMPHOMA
     Route: 048
     Dates: start: 20170404, end: 20171004
  5. AUGMENTIN [Concomitant]
     Active Substance: AMOXICILLIN\CLAVULANATE POTASSIUM
     Dosage: 875-125 MG, TWICE DAILY FOR 14 DAYS
     Route: 048
  6. ULTRAM [Concomitant]
     Active Substance: TRAMADOL HYDROCHLORIDE
     Dosage: EVERY 6 HOURS AS NEEDED FOR MODERATE OR SEVERE PAIN
     Route: 048
  7. SENOKOT [Concomitant]
     Active Substance: SENNOSIDES
     Dosage: 8.6-50 MG
     Route: 048
  8. ZYRTEC [Concomitant]
     Active Substance: CETIRIZINE HYDROCHLORIDE
     Route: 048
  9. KLOR-CON [Concomitant]
     Active Substance: POTASSIUM CHLORIDE
     Dosage: 2 TABLET
     Route: 048
  10. SALT + SODA [Concomitant]
     Dosage: MOUTHWASH, EVERY 4 HOURS AS NEEDED
     Route: 065

REACTIONS (3)
  - Dyspnoea [Unknown]
  - Pyrexia [Unknown]
  - Cough [Unknown]

NARRATIVE: CASE EVENT DATE: 20171004
